FAERS Safety Report 5491703-9 (Version None)
Quarter: 2007Q4

REPORT INFORMATION
  Report Type: 
  Country: None (occurrence: None)
  Receive Date: 20071018
  Receipt Date: 20071018
  Transmission Date: 20080405
  Serious: Yes (Life-Threatening)
  Sender: FDA-Public Use
  Company Number: None

PATIENT
  Age: 49 Year
  Sex: Female

DRUGS (8)
  1. NEUPOGEN [Suspect]
     Indication: FEBRILE NEUTROPENIA
     Dosage: 480 MCG SQ QHS
     Route: 058
     Dates: start: 20070820, end: 20070828
  2. GABAPENTIN [Concomitant]
  3. TOLTERODINE TARTRATE [Concomitant]
  4. LANSOPRAZOLE [Concomitant]
  5. KEPPRA [Concomitant]
  6. DIVALPROEX SODIUM [Concomitant]
  7. ZOSYN [Concomitant]
  8. MEROPENEM [Concomitant]

REACTIONS (4)
  - NECROSIS [None]
  - PYREXIA [None]
  - REFUSAL OF TREATMENT BY PATIENT [None]
  - THROMBOSIS [None]
